FAERS Safety Report 18434374 (Version 2)
Quarter: 2021Q3

REPORT INFORMATION
  Report Type: Spontaneous
  Country: US (occurrence: US)
  Receive Date: 20201028
  Receipt Date: 20210811
  Transmission Date: 20211014
  Serious: No
  Sender: FDA-Public Use
  Company Number: US-SA-2020SA297588

PATIENT
  Age: 62 Year
  Sex: Female

DRUGS (6)
  1. TRIAMCINOLONE ACETONIDE. [Concomitant]
     Active Substance: TRIAMCINOLONE ACETONIDE
  2. EUCRISA [Concomitant]
     Active Substance: CRISABOROLE
  3. MULTIVITAMINS [VITAMINS NOS] [Concomitant]
     Active Substance: VITAMINS
  4. DUOBRII [Concomitant]
     Active Substance: HALOBETASOL PROPIONATE\TAZAROTENE
  5. DUPIXENT [Suspect]
     Active Substance: DUPILUMAB
     Indication: DERMATITIS ATOPIC
     Dosage: 300 MG, QOW
     Route: 058
  6. TREMFYA [Concomitant]
     Active Substance: GUSELKUMAB

REACTIONS (5)
  - Skin exfoliation [Unknown]
  - Sleep disorder [Unknown]
  - Pruritus [Unknown]
  - Dermatitis atopic [Unknown]
  - Dry skin [Unknown]

NARRATIVE: CASE EVENT DATE: 202010
